FAERS Safety Report 12197699 (Version 7)
Quarter: 2016Q3

REPORT INFORMATION
  Report Type: Spontaneous
  Country: AR (occurrence: AR)
  Receive Date: 20160322
  Receipt Date: 20160929
  Transmission Date: 20161109
  Serious: Yes (Other)
  Sender: FDA-Public Use
  Company Number: AR-ROCHE-1720627

PATIENT
  Age: 32 Year
  Sex: Female
  Weight: 62 kg

DRUGS (4)
  1. FLU VACCINE [Concomitant]
     Active Substance: INFLUENZA VIRUS VACCINE
     Indication: PRODUCT USED FOR UNKNOWN INDICATION
     Route: 065
  2. FLUTICASONE/SALMETEROL [Concomitant]
     Active Substance: FLUTICASONE PROPIONATE\SALMETEROL XINAFOATE
     Indication: PRODUCT USED FOR UNKNOWN INDICATION
     Route: 065
  3. ACIFOL (ARGENTINA) [Concomitant]
     Indication: PRODUCT USED FOR UNKNOWN INDICATION
     Route: 065
  4. XOLAIR [Suspect]
     Active Substance: OMALIZUMAB
     Indication: ASTHMA
     Route: 058
     Dates: start: 200612, end: 201510

REACTIONS (9)
  - Maternal exposure during pregnancy [Unknown]
  - Vulvovaginal candidiasis [Recovered/Resolved]
  - Cephalo-pelvic disproportion [Recovered/Resolved]
  - Uterine contractions abnormal [Recovered/Resolved]
  - Streptococcus test positive [Recovered/Resolved]
  - Pregnancy on oral contraceptive [Unknown]
  - Gastritis [Recovered/Resolved]
  - Vomiting [Recovered/Resolved]
  - Upper respiratory tract infection [Recovered/Resolved]

NARRATIVE: CASE EVENT DATE: 201510
